FAERS Safety Report 14480734 (Version 1)
Quarter: 2018Q1

REPORT INFORMATION
  Report Type: Spontaneous
  Country: CH (occurrence: CH)
  Receive Date: 20180202
  Receipt Date: 20180202
  Transmission Date: 20180509
  Serious: Yes (Hospitalization)
  Sender: FDA-Public Use
  Company Number: CH-PFIZER INC-2018042318

PATIENT
  Age: 75 Year
  Sex: Female
  Weight: 52.2 kg

DRUGS (3)
  1. ZYPREXA [Suspect]
     Active Substance: OLANZAPINE
     Indication: HALLUCINATION
  2. TEMESTA (LORAZEPAM) [Suspect]
     Active Substance: LORAZEPAM
     Dosage: UNK (NOT KNOW THE QUANTITY TAKEN; IN USE FOR A FEW DAYS, ON A VOLUNTARY DECISION OF THE PATIENT)
     Route: 048
     Dates: start: 201712, end: 20171210
  3. ZYPREXA [Suspect]
     Active Substance: OLANZAPINE
     Indication: INSOMNIA
     Dosage: 5 MG, 1X/DAY (THERAPY IN PROGRESS FOR ABOUT THREE WEEKS)
     Route: 048
     Dates: start: 201711, end: 20171210

REACTIONS (3)
  - Confusional state [Recovered/Resolved]
  - Incoherent [Recovered/Resolved]
  - Apraxia [Recovered/Resolved]

NARRATIVE: CASE EVENT DATE: 20171210
